FAERS Safety Report 20461654 (Version 1)
Quarter: 2022Q1

REPORT INFORMATION
  Report Type: Spontaneous
  Country: US (occurrence: None)
  Receive Date: 20220209
  Receipt Date: 20220209
  Transmission Date: 20220423
  Serious: No
  Sender: FDA-Public Use
  Company Number: None

PATIENT

DRUGS (1)
  1. EUCALYPTOL , MENTHOL, METHYL SALICYLATE ,THYMOL [Suspect]
     Active Substance: EUCALYPTOL\MENTHOL\METHYL SALICYLATE\THYMOL
     Indication: COVID-19

REACTIONS (2)
  - Product advertising issue [None]
  - Product use complaint [None]

NARRATIVE: CASE EVENT DATE: 20220209
